FAERS Safety Report 7891324-4 (Version None)
Quarter: 2011Q4

REPORT INFORMATION
  Report Type: 
  Country: None (occurrence: None)
  Receive Date: 20111103
  Receipt Date: 20110801
  Transmission Date: 20120403
  Serious: No
  Sender: FDA-Public Use
  Company Number: US-AMGEN-USASP2011038849

PATIENT
  Sex: Female

DRUGS (1)
  1. ENBREL [Suspect]
     Indication: RHEUMATOID ARTHRITIS
     Dosage: 25 MG, EVERY 4 OR 5 DAYS
     Route: 058
     Dates: start: 20020101

REACTIONS (5)
  - JOINT SWELLING [None]
  - JOINT WARMTH [None]
  - SPIDER VEIN [None]
  - BACK PAIN [None]
  - ARTHRALGIA [None]
